FAERS Safety Report 9320159 (Version 1)
Quarter: 2013Q2

REPORT INFORMATION
  Report Type: Spontaneous
  Country: US (occurrence: US)
  Receive Date: 20130530
  Receipt Date: 20130530
  Transmission Date: 20140414
  Serious: No
  Sender: FDA-Public Use
  Company Number: US-UPSHER-SMITH LABORATORIES, INC.-13000396

PATIENT
  Age: 65 Year
  Sex: Male

DRUGS (10)
  1. POTASSIUM CHLORIDE [Suspect]
     Indication: BLOOD POTASSIUM DECREASED
     Dosage: 10 MEQ, BID
     Route: 048
  2. DONEPEZIL [Concomitant]
     Dosage: UNK
  3. TRAMADOL                           /00599202/ [Concomitant]
     Dosage: UNK, PRN
  4. NORCO [Concomitant]
     Dosage: UNK, PRN
  5. FUROSEMIDE [Concomitant]
     Dosage: UNK
  6. WARFARIN [Concomitant]
     Dosage: UNK
  7. LISINOPRIL [Concomitant]
     Dosage: UNK
  8. METOPROLOL [Concomitant]
     Dosage: UNK
  9. NORVASC                            /00972401/ [Concomitant]
     Dosage: 10 MG, UNK
  10. HYDROCHLOROTHIAZIDE [Concomitant]
     Dosage: 25 UNK, UNK

REACTIONS (2)
  - Muscle spasms [Unknown]
  - Product quality issue [Unknown]
